FAERS Safety Report 6091795-2 (Version None)
Quarter: 2009Q1

REPORT INFORMATION
  Report Type: 
  Country: None (occurrence: None)
  Receive Date: 20090225
  Receipt Date: 20080627
  Transmission Date: 20090719
  Serious: No
  Sender: FDA-Public Use
  Company Number: A0735174A

PATIENT
  Age: 34 Year
  Sex: Male

DRUGS (2)
  1. VALTREX [Suspect]
     Route: 048
     Dates: start: 20080101
  2. HERBS [Concomitant]

REACTIONS (1)
  - DRUG INEFFECTIVE [None]
